FAERS Safety Report 9374733 (Version 2)
Quarter: 2014Q2

REPORT INFORMATION
  Report Type: Spontaneous
  Country: US (occurrence: US)
  Receive Date: 20130628
  Receipt Date: 20140403
  Transmission Date: 20141212
  Serious: Yes (Hospitalization)
  Sender: FDA-Public Use
  Company Number: US-JNJFOC-20130611180

PATIENT
  Age: 30 Year
  Sex: Female
  Weight: 88.45 kg

DRUGS (1)
  1. ORTHO TRI-CYCLEN LO [Suspect]
     Indication: CONTRACEPTION
     Route: 048
     Dates: end: 20130611

REACTIONS (1)
  - Deep vein thrombosis [Recovering/Resolving]
